FAERS Safety Report 7301229-5 (Version None)
Quarter: 2011Q1

REPORT INFORMATION
  Report Type: 
  Country: None (occurrence: None)
  Receive Date: 20110218
  Receipt Date: 20110207
  Transmission Date: 20110831
  Serious: Yes (Hospitalization)
  Sender: FDA-Public Use
  Company Number: ES-SANOFI-AVENTIS-2010SA070073

PATIENT
  Age: 85 Year
  Sex: Female
  Weight: 69 kg

DRUGS (10)
  1. EMCONCOR /SPA/ [Concomitant]
     Indication: ATRIAL FIBRILLATION
     Dates: start: 20100701
  2. SOMAZINA [Concomitant]
  3. MULTAQ [Suspect]
     Indication: ARRHYTHMIA
     Route: 048
     Dates: start: 20101107, end: 20101111
  4. MULTAQ [Suspect]
     Route: 048
     Dates: start: 20101107, end: 20101111
  5. SEGURIL [Concomitant]
     Indication: CARDIAC FAILURE
     Dates: start: 20010101
  6. LEXATIN [Concomitant]
  7. SPIRONOLACTONE [Concomitant]
     Indication: CARDIAC FAILURE
     Route: 048
     Dates: start: 20070101
  8. ATACAND [Concomitant]
     Indication: AORTIC VALVE DISEASE
     Route: 048
  9. SINTROM [Concomitant]
     Route: 048
     Dates: start: 20010101
  10. TRANGOREX [Concomitant]
     Route: 048
     Dates: start: 20101021, end: 20101031

REACTIONS (11)
  - ARTHRALGIA [None]
  - ABDOMINAL PAIN [None]
  - VOMITING [None]
  - JAUNDICE [None]
  - HEPATOCELLULAR INJURY [None]
  - RENAL FAILURE [None]
  - ASTHENIA [None]
  - PRURITUS [None]
  - BLOOD CREATININE INCREASED [None]
  - HEPATITIS TOXIC [None]
  - DIARRHOEA [None]
